FAERS Safety Report 22999959 (Version 8)
Quarter: 2023Q4

REPORT INFORMATION
  Report Type: Spontaneous
  Country: ES (occurrence: ES)
  Receive Date: 20230928
  Receipt Date: 20231214
  Transmission Date: 20240110
  Serious: Yes (Life-Threatening, Hospitalization, Disabling, Other)
  Sender: FDA-Public Use
  Company Number: ES-BRISTOL-MYERS SQUIBB COMPANY-2023-132335

PATIENT
  Age: 50 Year
  Sex: Female

DRUGS (6)
  1. OZANIMOD [Suspect]
     Active Substance: OZANIMOD
     Indication: Multiple sclerosis
     Dosage: DOSING DETAILS UNKNOWN
     Route: 048
     Dates: start: 20230807
  2. OZANIMOD [Suspect]
     Active Substance: OZANIMOD
     Indication: Multiple sclerosis relapse
     Dosage: FREQ : UNAVAILABLE
     Route: 048
     Dates: end: 20230907
  3. MIRTAZAPINE [Suspect]
     Active Substance: MIRTAZAPINE
     Indication: Affective disorder
     Route: 048
     Dates: start: 20230605
  4. ACETAMINOPHEN [Suspect]
     Active Substance: ACETAMINOPHEN
     Indication: Pain
     Dosage: THE PATIENT WAS UNCERTAIN ABOUT THE EXACT NUMBER OF TABLETS TAKEN IN THE PREVIOUS WEEK OR SINCE STAR
     Route: 048
     Dates: start: 2022
  5. LEVOTHYROXINE SODIUM [Concomitant]
     Active Substance: LEVOTHYROXINE SODIUM
     Indication: Hypothyroidism
     Route: 048
     Dates: start: 20160308
  6. BISOPROLOL [Concomitant]
     Active Substance: BISOPROLOL\BISOPROLOL FUMARATE
     Indication: Chest pain
     Route: 048
     Dates: start: 20201031

REACTIONS (7)
  - Malaise [Recovering/Resolving]
  - Decreased appetite [Recovering/Resolving]
  - Asthenia [Recovering/Resolving]
  - Acute hepatic failure [Recovering/Resolving]
  - Jaundice [Recovering/Resolving]
  - Hyperbilirubinaemia [Recovering/Resolving]
  - Encephalopathy [Unknown]

NARRATIVE: CASE EVENT DATE: 20230822
